FAERS Safety Report 14483078 (Version 1)
Quarter: 2018Q1

REPORT INFORMATION
  Report Type: Spontaneous
  Country: US (occurrence: US)
  Receive Date: 20180203
  Receipt Date: 20180203
  Transmission Date: 20180509
  Serious: No
  Sender: FDA-Public Use
  Company Number: US-009507513-1802USA001166

PATIENT
  Sex: Female

DRUGS (9)
  1. CYMBALTA [Suspect]
     Active Substance: DULOXETINE HYDROCHLORIDE
  2. PREDNISONE. [Suspect]
     Active Substance: PREDNISONE
     Route: 048
  3. LIPITOR [Suspect]
     Active Substance: ATORVASTATIN CALCIUM
  4. CELEXA [Suspect]
     Active Substance: CITALOPRAM HYDROBROMIDE
  5. PRINIVIL [Suspect]
     Active Substance: LISINOPRIL
     Route: 048
  6. DILAUDID [Suspect]
     Active Substance: HYDROMORPHONE HYDROCHLORIDE
  7. IBUPROFEN. [Suspect]
     Active Substance: IBUPROFEN
  8. TENORETIC [Suspect]
     Active Substance: ATENOLOL\CHLORTHALIDONE
     Dosage: TENORETIC 100 (UNITS NOT PROVIDED)
  9. CRESTOR [Suspect]
     Active Substance: ROSUVASTATIN CALCIUM

REACTIONS (1)
  - Drug hypersensitivity [Unknown]
